FAERS Safety Report 7458527-4 (Version None)
Quarter: 2011Q2

REPORT INFORMATION
  Report Type: 
  Country: None (occurrence: None)
  Receive Date: 20110504
  Receipt Date: 20110421
  Transmission Date: 20111010
  Serious: Yes (Other)
  Sender: FDA-Public Use
  Company Number: PHHY2011JP33914

PATIENT
  Age: 80 Year
  Sex: Male

DRUGS (6)
  1. WARFARIN [Interacting]
     Dosage: 7 MG, UNK
     Route: 048
  2. ANTITUBERCULOUS [Suspect]
     Indication: MYCOBACTERIAL INFECTION
  3. RIFAMPICIN [Interacting]
     Indication: MYCOBACTERIAL INFECTION
     Route: 048
  4. WARFARIN [Interacting]
     Indication: ATRIAL FIBRILLATION
     Dosage: 3 MG, UNK
     Route: 048
  5. HEPARIN [Suspect]
     Dosage: 12000 U/DAY
  6. HEPARIN [Suspect]
     Dosage: 10000 U/DAY

REACTIONS (5)
  - TRANSIENT ISCHAEMIC ATTACK [None]
  - INTERNATIONAL NORMALISED RATIO DECREASED [None]
  - DRUG INTERACTION [None]
  - ARTERIAL THROMBOSIS [None]
  - GLOMERULONEPHRITIS MEMBRANOUS [None]
